FAERS Safety Report 7297367-6 (Version None)
Quarter: 2011Q1

REPORT INFORMATION
  Report Type: 
  Country: None (occurrence: None)
  Receive Date: 20110216
  Receipt Date: 20110116
  Transmission Date: 20110831
  Serious: No
  Sender: FDA-Public Use
  Company Number: US-BAYER-2011-005928

PATIENT
  Age: 62 Year
  Sex: Female
  Weight: 90.703 kg

DRUGS (4)
  1. ALEVE (CAPLET) [Suspect]
     Dosage: UNK UNK, BID
     Route: 048
     Dates: start: 20110116, end: 20110116
  2. ACETAMINOPHEN AND HYDROCODONE BITARTRATE [Concomitant]
     Indication: PAIN
  3. MUSCLE RELAXANT [Concomitant]
  4. ALEVE (CAPLET) [Suspect]
     Dosage: 440 MG, QD
     Route: 048

REACTIONS (1)
  - NO ADVERSE EVENT [None]
